FAERS Safety Report 5884209-6 (Version None)
Quarter: 2008Q3

REPORT INFORMATION
  Report Type: 
  Country: None (occurrence: None)
  Receive Date: 20080915
  Receipt Date: 20080904
  Transmission Date: 20090109
  Serious: No
  Sender: FDA-Public Use
  Company Number: GR-ASTRAZENECA-2008SE04218

PATIENT
  Age: 70 Year
  Sex: Male

DRUGS (4)
  1. SEROQUEL [Suspect]
     Indication: PSYCHOTIC DISORDER
     Route: 048
     Dates: start: 20080701
  2. LORAZEPAM [Concomitant]
     Indication: PSYCHOTIC DISORDER
     Route: 048
     Dates: start: 20080620
  3. EFFEXOR [Concomitant]
     Indication: PSYCHOTIC DISORDER
     Route: 048
     Dates: start: 20080620
  4. PLENDIL [Concomitant]
     Indication: HYPERTENSION
     Dosage: FELODIPINE TREATMENT STARTED 15 YEARS AGO, DOSE UNKNOWN
     Route: 048
     Dates: end: 20080701

REACTIONS (1)
  - LEUKOPENIA [None]
